FAERS Safety Report 9887972 (Version 2)
Quarter: 2014Q1

REPORT INFORMATION
  Report Type: Report from Study
  Country: US (occurrence: US)
  Receive Date: 20140211
  Receipt Date: 20140211
  Transmission Date: 20141002
  Serious: Yes (Death, Hospitalization, Other)
  Sender: FDA-Public Use
  Company Number: US-TEVA-453377USA

PATIENT
  Age: 40 Year
  Sex: Male

DRUGS (10)
  1. CLOZAPINE [Suspect]
     Indication: SCHIZOAFFECTIVE DISORDER
     Route: 048
  2. TOPAMAX [Concomitant]
  3. AMBIEN CR [Concomitant]
  4. NEURONTIN [Concomitant]
  5. BENZTROPINE [Concomitant]
  6. HUMALOG [Concomitant]
  7. JANUVIA [Concomitant]
  8. LANTUS [Concomitant]
  9. METAGLIP [Concomitant]
  10. METFORMIN [Concomitant]

REACTIONS (2)
  - Death [Fatal]
  - Dyskinesia [Not Recovered/Not Resolved]
